FAERS Safety Report 19240672 (Version 3)
Quarter: 2021Q2

REPORT INFORMATION
  Report Type: Spontaneous
  Country: US (occurrence: US)
  Receive Date: 20210511
  Receipt Date: 20210614
  Transmission Date: 20210717
  Serious: No
  Sender: FDA-Public Use
  Company Number: US-LUPIN PHARMACEUTICALS INC.-2021-06579

PATIENT
  Sex: Female

DRUGS (1)
  1. BUDESONIDE INHALATION SUSPENSION, 0.5 MG/2 ML [Suspect]
     Active Substance: BUDESONIDE
     Indication: INFLAMMATION
     Dosage: 0.5 MILLIGRAM, BID
     Route: 048
     Dates: start: 20210402, end: 202104

REACTIONS (3)
  - No adverse event [Unknown]
  - Incorrect route of product administration [Unknown]
  - Product prescribing error [Unknown]
